FAERS Safety Report 23448415 (Version 2)
Quarter: 2025Q2

REPORT INFORMATION
  Report Type: Spontaneous
  Country: GB (occurrence: GB)
  Receive Date: 20240127
  Receipt Date: 20250524
  Transmission Date: 20250716
  Serious: Yes (Hospitalization)
  Sender: CELLTRION
  Company Number: GB-CELLTRION INC.-2024GB001850

PATIENT

DRUGS (3)
  1. YUFLYMA [Suspect]
     Active Substance: ADALIMUMAB-AATY
     Indication: Rheumatoid arthritis
     Route: 058
     Dates: start: 202310
  2. YUFLYMA [Suspect]
     Active Substance: ADALIMUMAB-AATY
     Dosage: 2 X YUFLYMA 40MG FOR INJECTION PENS - INJECT ONE PRE-FILLED PEN ONCE EVERY WEEK
     Route: 058
     Dates: start: 202310, end: 202505
  3. YUFLYMA [Suspect]
     Active Substance: ADALIMUMAB-AATY
     Dosage: 2 X YUFLYMA 40MG FOR INJECTION PENS - INJECT ONE PRE-FILLED PEN ONCE EVERY WEEK
     Route: 058
     Dates: start: 202310, end: 202505

REACTIONS (4)
  - Bladder disorder [Unknown]
  - Renal disorder [Unknown]
  - Fall [Unknown]
  - Intentional dose omission [Unknown]
